FAERS Safety Report 5632573-5 (Version None)
Quarter: 2008Q1

REPORT INFORMATION
  Report Type: 
  Country: None (occurrence: None)
  Receive Date: 20080220
  Receipt Date: 20080209
  Transmission Date: 20080703
  Serious: Yes (Other)
  Sender: FDA-Public Use
  Company Number: US-PFIZER INC-2008012516

PATIENT
  Sex: Female
  Weight: 81.2 kg

DRUGS (3)
  1. LIPITOR [Suspect]
     Indication: BLOOD CHOLESTEROL INCREASED
  2. NIFEDIPINE [Concomitant]
     Indication: HYPERTENSION
  3. HYDROCHLOROTHIAZIDE [Concomitant]
     Indication: HYPERTENSION

REACTIONS (11)
  - ADVERSE DRUG REACTION [None]
  - EYE SWELLING [None]
  - ILL-DEFINED DISORDER [None]
  - JOINT SWELLING [None]
  - OEDEMA PERIPHERAL [None]
  - RASH [None]
  - SKIN DISCOLOURATION [None]
  - SKIN DISORDER [None]
  - SKIN LESION [None]
  - SWELLING FACE [None]
  - THERAPEUTIC PRODUCT CONTAMINATION [None]
